FAERS Safety Report 8348474-8 (Version None)
Quarter: 2012Q2

REPORT INFORMATION
  Report Type: 
  Country: None (occurrence: None)
  Receive Date: 20120509
  Receipt Date: 20120508
  Transmission Date: 20120825
  Serious: Yes (Hospitalization, Other)
  Sender: FDA-Public Use
  Company Number: US-AMGEN-KDL438258

PATIENT
  Age: 67 Year
  Sex: Female

DRUGS (6)
  1. ENBREL [Suspect]
     Indication: POLYMYALGIA RHEUMATICA
  2. CRESTOR [Concomitant]
     Dosage: UNK
  3. ENBREL [Suspect]
     Indication: PSORIASIS
     Dosage: UNK
     Dates: start: 20060101
  4. SYNTHROID [Concomitant]
     Dosage: UNK
  5. COZAAR [Concomitant]
     Dosage: UNK
  6. ESTRACE [Concomitant]
     Dosage: UNK

REACTIONS (1)
  - JOINT DESTRUCTION [None]
